FAERS Safety Report 6828058-0 (Version None)
Quarter: 2010Q3

REPORT INFORMATION
  Report Type: 
  Country: None (occurrence: None)
  Receive Date: 20100709
  Receipt Date: 20100630
  Transmission Date: 20110219
  Serious: Yes (Hospitalization)
  Sender: FDA-Public Use
  Company Number: B0663918A

PATIENT
  Sex: Female

DRUGS (2)
  1. AUGMENTIN '125' [Suspect]
     Indication: INFECTION
     Route: 048
     Dates: start: 20100603, end: 20100607
  2. AUGMENTIN XR [Concomitant]
     Route: 048
     Dates: start: 20100601, end: 20100603

REACTIONS (2)
  - DIARRHOEA [None]
  - MEDICATION ERROR [None]
